FAERS Safety Report 9723483 (Version 3)
Quarter: 2013Q4

REPORT INFORMATION
  Report Type: Spontaneous
  Country: IT (occurrence: IT)
  Receive Date: 20131202
  Receipt Date: 20131211
  Transmission Date: 20140711
  Serious: Yes (Life-Threatening)
  Sender: FDA-Public Use
  Company Number: IT-PFIZER INC-2013344076

PATIENT
  Age: 79 Year
  Sex: Male

DRUGS (4)
  1. CARBOPLATINO PFIZER ITALIA [Suspect]
     Indication: PLEURAL MESOTHELIOMA MALIGNANT RECURRENT
     Dosage: 408 MG, CYCLIC
     Route: 042
     Dates: start: 20121214, end: 20130514
  2. RANITIDINE [Concomitant]
     Indication: ADJUVANT THERAPY
     Dosage: 50 MG, UNK
     Dates: start: 20121214, end: 20130514
  3. ALOXI [Concomitant]
     Indication: PROPHYLAXIS OF NAUSEA AND VOMITING
     Dosage: 250 UG, UNK
     Route: 042
     Dates: start: 20121214, end: 20130514
  4. TRIMETON [Concomitant]
     Indication: ADJUVANT THERAPY
     Dosage: 10 MG, UNK
     Dates: start: 20121214, end: 20130514

REACTIONS (4)
  - Acute respiratory failure [Recovered/Resolved]
  - Loss of consciousness [Recovered/Resolved]
  - Hypotension [Recovered/Resolved]
  - Off label use [Unknown]
